FAERS Safety Report 18857759 (Version 2)
Quarter: 2021Q1

REPORT INFORMATION
  Report Type: Report from Study
  Country: None (occurrence: ES)
  Receive Date: 20210208
  Receipt Date: 20210210
  Transmission Date: 20210420
  Serious: Yes (Death, Hospitalization)
  Sender: FDA-Public Use
  Company Number: ES-ABBVIE-20K-144-3713939-00

PATIENT
  Age: 59 Year
  Sex: Female

DRUGS (2)
  1. DUODOPA [Suspect]
     Active Substance: CARBIDOPA\LEVODOPA
     Indication: PARKINSON^S DISEASE
     Route: 050
     Dates: start: 20200924, end: 20210204
  2. DUODOPA [Suspect]
     Active Substance: CARBIDOPA\LEVODOPA

REACTIONS (11)
  - Nephritis [Not Recovered/Not Resolved]
  - Vesicoureteric reflux [Recovered/Resolved]
  - Haematuria [Not Recovered/Not Resolved]
  - Ileus paralytic [Fatal]
  - Parkinson^s disease [Fatal]
  - Aspiration [Fatal]
  - Vomiting [Fatal]
  - Coma [Fatal]
  - Nephrolithiasis [Recovered/Resolved]
  - Pyrexia [Fatal]
  - Urinary tract infection [Recovering/Resolving]

NARRATIVE: CASE EVENT DATE: 202012
